FAERS Safety Report 22048313 (Version 1)
Quarter: 2023Q1

REPORT INFORMATION
  Report Type: Spontaneous
  Country: DE (occurrence: DE)
  Receive Date: 20230301
  Receipt Date: 20230301
  Transmission Date: 20230417
  Serious: Yes (Life-Threatening)
  Sender: FDA-Public Use
  Company Number: DE-BoehringerIngelheim-2023-BI-221320

PATIENT
  Age: 76 Year
  Sex: Male
  Weight: 120 kg

DRUGS (1)
  1. ALTEPLASE [Suspect]
     Active Substance: ALTEPLASE
     Indication: Cerebrovascular accident
     Route: 042
     Dates: start: 20230223, end: 20230223

REACTIONS (2)
  - General physical health deterioration [Unknown]
  - Drug ineffective [Unknown]
